FAERS Safety Report 10936598 (Version 1)
Quarter: 2015Q1

REPORT INFORMATION
  Report Type: Spontaneous
  Country: US (occurrence: None)
  Receive Date: 20150212
  Receipt Date: 20150212
  Transmission Date: 20150721
  Serious: No
  Sender: FDA-Public Use
  Company Number: TPA2011A00321

PATIENT
  Age: 64 Year
  Sex: Male
  Weight: 83.92 kg

DRUGS (2)
  1. NAPROXEN (NAPROXEN) [Concomitant]
     Active Substance: NAPROXEN
  2. ULORIC [Suspect]
     Active Substance: FEBUXOSTAT
     Indication: GOUT
     Route: 048
     Dates: start: 20110118

REACTIONS (3)
  - Joint swelling [None]
  - Condition aggravated [None]
  - Oedema peripheral [None]

NARRATIVE: CASE EVENT DATE: 201101
